FAERS Safety Report 15861005 (Version 1)
Quarter: 2019Q1

REPORT INFORMATION
  Report Type: Report from Study
  Country: US (occurrence: US)
  Receive Date: 20190124
  Receipt Date: 20190124
  Transmission Date: 20190417
  Serious: Yes (Hospitalization)
  Sender: FDA-Public Use
  Company Number: PHEH2013US019552

PATIENT
  Age: 13 Year
  Sex: Male

DRUGS (12)
  1. MELATONIN [Concomitant]
     Active Substance: MELATONIN
  2. PERAMPANEL [Concomitant]
     Active Substance: PERAMPANEL
  3. CLARITIN [Concomitant]
     Active Substance: LORATADINE
  4. COLACE [Concomitant]
     Active Substance: DOCUSATE SODIUM
  5. MULTI-VIT [Concomitant]
     Active Substance: VITAMINS
  6. AFINITOR [Suspect]
     Active Substance: EVEROLIMUS
     Indication: ASTROCYTOMA, LOW GRADE
     Dosage: 5 MG, DAILY
     Route: 048
     Dates: start: 20130610
  7. KLONOPIN [Concomitant]
     Active Substance: CLONAZEPAM
  8. LAMICTAL [Concomitant]
     Active Substance: LAMOTRIGINE
  9. LAXATIVE [Concomitant]
     Active Substance: UNSPECIFIED INGREDIENT
  10. TRILEPTAL [Concomitant]
     Active Substance: OXCARBAZEPINE
  11. VIMPAT [Concomitant]
     Active Substance: LACOSAMIDE
  12. DIASTAT [Concomitant]
     Active Substance: DIAZEPAM

REACTIONS (2)
  - Seizure [Unknown]
  - Hypersomnia [Unknown]

NARRATIVE: CASE EVENT DATE: 20130610
